FAERS Safety Report 19453590 (Version 3)
Quarter: 2022Q2

REPORT INFORMATION
  Report Type: Spontaneous
  Country: JP (occurrence: JP)
  Receive Date: 20210623
  Receipt Date: 20220517
  Transmission Date: 20220721
  Serious: Yes (Death, Other)
  Sender: FDA-Public Use
  Company Number: JP-SA-2021SA155845

PATIENT
  Age: 25 Month
  Sex: Male

DRUGS (6)
  1. DOCETAXEL [Suspect]
     Active Substance: DOCETAXEL
     Indication: Metastases to lymph nodes
     Dosage: 100 MG/M2
  2. DOCETAXEL [Suspect]
     Active Substance: DOCETAXEL
     Indication: Rhabdoid tumour of the kidney
  3. DOCETAXEL [Suspect]
     Active Substance: DOCETAXEL
     Indication: Metastases to lung
  4. GEMCITABINE [Suspect]
     Active Substance: GEMCITABINE
     Indication: Metastases to lung
     Dosage: 1800 MG/M2
  5. GEMCITABINE [Suspect]
     Active Substance: GEMCITABINE
     Indication: Metastases to lymph nodes
  6. GEMCITABINE [Suspect]
     Active Substance: GEMCITABINE
     Indication: Rhabdoid tumour of the kidney

REACTIONS (8)
  - Pleural effusion [Fatal]
  - Pulmonary oedema [Fatal]
  - Acute respiratory failure [Fatal]
  - Pneumonia [Unknown]
  - Face oedema [Unknown]
  - Condition aggravated [Unknown]
  - Haematotoxicity [Unknown]
  - Therapy partial responder [Unknown]
